FAERS Safety Report 10036538 (Version 2)
Quarter: 2014Q1

REPORT INFORMATION
  Report Type: Report from Study
  Country: FR (occurrence: FR)
  Receive Date: 20140326
  Receipt Date: 20140326
  Transmission Date: 20141002
  Serious: Yes (Hospitalization)
  Sender: FDA-Public Use
  Company Number: FR-ROCHE-1161424

PATIENT
  Age: 51 Year
  Sex: Female

DRUGS (23)
  1. RITUXIMAB [Suspect]
     Indication: RHEUMATOID ARTHRITIS
     Route: 041
     Dates: start: 20060922
  2. RITUXIMAB [Suspect]
     Route: 041
     Dates: start: 20131024
  3. RITUXIMAB [Suspect]
     Route: 041
     Dates: start: 20070525
  4. RITUXIMAB [Suspect]
     Route: 041
     Dates: start: 20070607
  5. RITUXIMAB [Suspect]
     Route: 041
     Dates: start: 20081127
  6. RITUXIMAB [Suspect]
     Route: 041
     Dates: start: 20081212
  7. RITUXIMAB [Suspect]
     Route: 041
     Dates: start: 20120713
  8. METHOTREXATE [Concomitant]
     Route: 065
     Dates: start: 20060922
  9. METHOTREXATE [Concomitant]
     Route: 065
     Dates: start: 20061024
  10. CORTANCYL [Concomitant]
     Route: 065
     Dates: start: 20060922
  11. CORTANCYL [Concomitant]
     Route: 065
     Dates: start: 20061024
  12. CORTANCYL [Concomitant]
     Route: 065
     Dates: start: 20070525
  13. CORTANCYL [Concomitant]
     Route: 065
     Dates: start: 20070607
  14. CORTANCYL [Concomitant]
     Route: 065
     Dates: start: 20081127
  15. CORTANCYL [Concomitant]
     Route: 065
     Dates: start: 20081212
  16. LEFLUNOMIDE [Concomitant]
     Route: 065
     Dates: start: 20070525
  17. LEFLUNOMIDE [Concomitant]
     Route: 065
     Dates: start: 20070607
  18. LEFLUNOMIDE [Concomitant]
     Route: 065
     Dates: start: 20081127
  19. LEFLUNOMIDE [Concomitant]
     Route: 065
     Dates: start: 20081212
  20. HUMIRA [Concomitant]
     Route: 065
     Dates: start: 20090529
  21. CIMZIA [Concomitant]
  22. METHYLPREDNISOLONE [Concomitant]
  23. SIMPONI [Concomitant]
     Route: 065
     Dates: start: 20121120

REACTIONS (11)
  - Bronchitis [Recovered/Resolved]
  - Pyrexia [Recovered/Resolved]
  - Mental disorder [Not Recovered/Not Resolved]
  - Sinusitis [Recovered/Resolved]
  - Arthritis [Recovered/Resolved]
  - Open angle glaucoma [Unknown]
  - Oral fungal infection [Recovered/Resolved]
  - Psoriasis [Recovered/Resolved]
  - Dysuria [Recovered/Resolved]
  - Bronchitis [Recovered/Resolved]
  - Infusion related reaction [Recovered/Resolved]
